FAERS Safety Report 8255372 (Version 9)
Quarter: 2016Q2

REPORT INFORMATION
  Report Type: Report from Study
  Country: BR (occurrence: BR)
  Receive Date: 20111118
  Receipt Date: 20160412
  Transmission Date: 20160815
  Serious: Yes (Other)
  Sender: FDA-Public Use
  Company Number: PHHY2011BR098758

PATIENT
  Sex: Female
  Weight: 67 kg

DRUGS (10)
  1. PURAN [Concomitant]
     Active Substance: LEVOTHYROXINE SODIUM
     Dosage: 175 UG, DAILY (ON SUNDAY)
     Route: 048
  2. HYDROCHLOROTHIAZIDE. [Concomitant]
     Active Substance: HYDROCHLOROTHIAZIDE
     Indication: PRODUCT USED FOR UNKNOWN INDICATION
     Dosage: 25 MG, UNK
     Route: 065
     Dates: start: 2006
  3. FUROSEMIDE. [Concomitant]
     Active Substance: FUROSEMIDE
     Indication: DIURETIC THERAPY
     Dosage: 1 DF, QD
     Route: 048
     Dates: start: 2007
  4. CAPTOPRIL. [Concomitant]
     Active Substance: CAPTOPRIL
     Indication: HYPERTENSION
     Dosage: 25 MG, QD
     Route: 048
  5. SANDOSTATIN LAR DEPOT [Suspect]
     Active Substance: OCTREOTIDE ACETATE
     Dosage: 20 MG, QMO
     Route: 030
     Dates: start: 2011
  6. PURAN [Concomitant]
     Active Substance: LEVOTHYROXINE SODIUM
     Dosage: 150 UG, PER DAY (FROM MONDAY UNTIL SATURDAY)
     Route: 048
     Dates: start: 2007
  7. PURAN [Concomitant]
     Active Substance: LEVOTHYROXINE SODIUM
     Dosage: 165 MCG, UNK
     Route: 048
  8. PURAN [Concomitant]
     Active Substance: LEVOTHYROXINE SODIUM
     Dosage: 175 UG, PER DAY (ON SUNDAY)
     Route: 048
  9. SANDOSTATIN LAR DEPOT [Suspect]
     Active Substance: OCTREOTIDE ACETATE
     Indication: ACROMEGALY
     Dosage: 20 MG, QMO
     Route: 030
     Dates: end: 201102
  10. PURAN [Concomitant]
     Active Substance: LEVOTHYROXINE SODIUM
     Indication: HYPOTHYROIDISM
     Dosage: 150 UG, DAILY FROM MONDAY UNTIL SATURDAY)
     Route: 048
     Dates: start: 2005

REACTIONS (28)
  - Neoplasm recurrence [Unknown]
  - Pain [Unknown]
  - Hand deformity [Unknown]
  - Metastasis [Unknown]
  - Swelling face [Not Recovered/Not Resolved]
  - Asthenopia [Unknown]
  - Injection site pain [Unknown]
  - Oedema peripheral [Not Recovered/Not Resolved]
  - Arthralgia [Unknown]
  - Weight decreased [Unknown]
  - Foot deformity [Unknown]
  - Tongue discolouration [Unknown]
  - Thyroid cancer [Unknown]
  - Weight increased [Recovering/Resolving]
  - Visual impairment [Unknown]
  - Lip disorder [Unknown]
  - Bone density increased [Unknown]
  - Blood growth hormone increased [Unknown]
  - Hyperthyroidism [Unknown]
  - Eye swelling [Not Recovered/Not Resolved]
  - Metastases to lung [Unknown]
  - Insulin-like growth factor increased [Unknown]
  - Swollen tongue [Not Recovered/Not Resolved]
  - Micturition disorder [Unknown]
  - Vomiting [Unknown]
  - Memory impairment [Unknown]
  - Pain in extremity [Unknown]
  - Tongue disorder [Unknown]

NARRATIVE: CASE EVENT DATE: 2007
